FAERS Safety Report 24297946 (Version 1)
Quarter: 2024Q3

REPORT INFORMATION
  Report Type: Spontaneous
  Country: JP (occurrence: JP)
  Receive Date: 20240909
  Receipt Date: 20240909
  Transmission Date: 20241016
  Serious: Yes (Hospitalization)
  Sender: ASTELLAS
  Company Number: JP-ASTELLAS-2024-AER-003564

PATIENT
  Age: 84 Year
  Sex: Male

DRUGS (2)
  1. PROGRAF [Suspect]
     Active Substance: TACROLIMUS
     Indication: Polymyositis
     Dosage: DAILY DOSE 3 MG, 2 EVERY 1 DAY (AFTER BREAKFAST AND DINNER)
     Route: 048
  2. PROGRAF [Suspect]
     Active Substance: TACROLIMUS
     Indication: Interstitial lung disease

REACTIONS (1)
  - Gait disturbance [Unknown]
